FAERS Safety Report 15991665 (Version 2)
Quarter: 2019Q1

REPORT INFORMATION
  Report Type: Spontaneous
  Country: US (occurrence: US)
  Receive Date: 20190221
  Receipt Date: 20190228
  Transmission Date: 20190418
  Serious: Yes (Other)
  Sender: FDA-Public Use
  Company Number: US-ASTRAZENECA-2018SF00409

PATIENT

DRUGS (8)
  1. PRILOSEC [Suspect]
     Active Substance: OMEPRAZOLE MAGNESIUM
     Route: 048
     Dates: start: 20180223
  2. KLONOPIN [Concomitant]
     Active Substance: CLONAZEPAM
  3. METFORMIN [Concomitant]
     Active Substance: METFORMIN HYDROCHLORIDE
  4. NEXIUM [Suspect]
     Active Substance: ESOMEPRAZOLE MAGNESIUM
     Route: 048
  5. LISINOPRIL. [Concomitant]
     Active Substance: LISINOPRIL
  6. PREVACID IV [Suspect]
     Active Substance: LANSOPRAZOLE
     Route: 065
  7. ASPIRIN. [Concomitant]
     Active Substance: ASPIRIN
  8. PROZAC [Concomitant]
     Active Substance: FLUOXETINE HYDROCHLORIDE

REACTIONS (2)
  - Chronic kidney disease [Unknown]
  - Renal injury [Unknown]
